FAERS Safety Report 6841110-9 (Version None)
Quarter: 2010Q3

REPORT INFORMATION
  Report Type: 
  Country: None (occurrence: None)
  Receive Date: 20100714
  Receipt Date: 20070628
  Transmission Date: 20110219
  Serious: No
  Sender: FDA-Public Use
  Company Number: US-PFIZER INC-2007055051

PATIENT
  Sex: Female
  Weight: 74.09 kg

DRUGS (4)
  1. CHANTIX [Suspect]
     Indication: SMOKING CESSATION THERAPY
     Dates: start: 20070101, end: 20070101
  2. LORAZEPAM [Concomitant]
     Indication: NERVOUSNESS
  3. WELLBUTRIN [Concomitant]
     Indication: NERVOUSNESS
  4. LEXAPRO [Concomitant]
     Indication: NERVOUSNESS

REACTIONS (1)
  - DRUG INEFFECTIVE [None]
